FAERS Safety Report 6520280-6 (Version None)
Quarter: 2009Q4

REPORT INFORMATION
  Report Type: 
  Country: None (occurrence: None)
  Receive Date: 20091229
  Receipt Date: 20091224
  Transmission Date: 20100525
  Serious: Yes (Death, Hospitalization)
  Sender: FDA-Public Use
  Company Number: CN-NOVOPROD-302499

PATIENT
  Age: 70 Year
  Sex: Male

DRUGS (1)
  1. NOVORAPID PENFILL [Suspect]
     Indication: DRUG USE FOR UNKNOWN INDICATION
     Route: 058

REACTIONS (1)
  - MYOCARDIAL INFARCTION [None]
